FAERS Safety Report 7713353-3 (Version None)
Quarter: 2011Q3

REPORT INFORMATION
  Report Type: 
  Country: None (occurrence: None)
  Receive Date: 20110826
  Receipt Date: 20110824
  Transmission Date: 20111222
  Serious: Yes (Other)
  Sender: FDA-Public Use
  Company Number: US-BAYER-2011-077189

PATIENT
  Sex: Female

DRUGS (1)
  1. YASMIN [Suspect]
     Dosage: UNK
     Route: 048
     Dates: start: 20070901, end: 20080701

REACTIONS (4)
  - INJURY [None]
  - DEEP VEIN THROMBOSIS [None]
  - PULMONARY EMBOLISM [None]
  - COR PULMONALE [None]
